FAERS Safety Report 9222571 (Version 1)
Quarter: 2013Q1

REPORT INFORMATION
  Report Type: Spontaneous
  Country: US (occurrence: US)
  Receive Date: 20120914
  Receipt Date: 20120914
  Transmission Date: 20140127
  Serious: No
  Sender: FDA-Public Use
  Company Number: JPI-P-013591

PATIENT
  Age: 38 Year
  Sex: Female
  Weight: 65.77 kg

DRUGS (7)
  1. XYREM (500 MG/ML SOLUTION)(SODIUM OXYBATE) [Suspect]
     Indication: CATAPLEXY
     Dosage: TWO DOSES TAKEN AT BEDTIME/NIGHTLY.
     Route: 048
     Dates: start: 20040213, end: 200501
  2. SPIRONOLACTONE [Concomitant]
  3. ZIPRASIDONE [Concomitant]
  4. LEVOTHYROXINE [Concomitant]
  5. CARBAMAZEPINE [Concomitant]
  6. LAMOTRIGINE [Concomitant]
  7. IMIPRAMINE [Concomitant]

REACTIONS (10)
  - Weight decreased [None]
  - Gingival swelling [None]
  - Nervousness [None]
  - Stress [None]
  - Alopecia [None]
  - Condition aggravated [None]
  - Somnambulism [None]
  - Confusional state [None]
  - Enuresis [None]
  - Sleep paralysis [None]
